FAERS Safety Report 4511663-4 (Version None)
Quarter: 2004Q4

REPORT INFORMATION
  Report Type: 
  Country: None (occurrence: None)
  Receive Date: 20041123
  Receipt Date: 20041123
  Transmission Date: 20050328
  Serious: Yes (Hospitalization)
  Sender: FDA-Public Use
  Company Number: None

PATIENT
  Age: 76 Year
  Sex: Female

DRUGS (1)
  1. HYDROCHLOROTHIAZIDE [Suspect]
     Indication: OEDEMA
     Dosage: 25 MG QD ORAL
     Route: 048
     Dates: start: 20040316, end: 20040323

REACTIONS (5)
  - CONVULSION [None]
  - HYPONATRAEMIA [None]
  - INSOMNIA [None]
  - LETHARGY [None]
  - VOMITING [None]
